FAERS Safety Report 7642497-X (Version None)
Quarter: 2011Q3

REPORT INFORMATION
  Report Type: 
  Country: None (occurrence: None)
  Receive Date: 20110728
  Receipt Date: 20110726
  Transmission Date: 20111222
  Serious: Yes (Congenital Anomaly, Other)
  Sender: FDA-Public Use
  Company Number: US-PFIZER INC-2011089767

PATIENT
  Sex: Female
  Weight: 3 kg

DRUGS (3)
  1. PROCARDIA [Concomitant]
     Route: 064
  2. ZOLOFT [Suspect]
     Dosage: UNK
     Route: 065
  3. VALTREX [Concomitant]
     Route: 064

REACTIONS (14)
  - CONGENITAL ARTERIAL MALFORMATION [None]
  - FALLOT'S TETRALOGY [None]
  - CARDIOMEGALY [None]
  - ATRIAL SEPTAL DEFECT [None]
  - TACHYPNOEA [None]
  - BRONCHIAL HYPERREACTIVITY [None]
  - MATERNAL EXPOSURE DURING PREGNANCY [None]
  - HEPATOMEGALY [None]
  - OTITIS MEDIA [None]
  - PERIORBITAL OEDEMA [None]
  - PULMONARY ARTERY ATRESIA [None]
  - CORONARY ARTERY DISEASE [None]
  - BRONCHIOLITIS [None]
  - PHARYNGITIS STREPTOCOCCAL [None]
